FAERS Safety Report 20391776 (Version 1)
Quarter: 2022Q1

REPORT INFORMATION
  Report Type: Spontaneous
  Country: BR (occurrence: BR)
  Receive Date: 20220128
  Receipt Date: 20220128
  Transmission Date: 20220423
  Serious: Yes (Other)
  Sender: FDA-Public Use
  Company Number: BR-ABBOTT-2022A-1345241

PATIENT
  Sex: Female

DRUGS (1)
  1. CREON [Suspect]
     Active Substance: PANCRELIPASE AMYLASE\PANCRELIPASE LIPASE\PANCRELIPASE PROTEASE
     Indication: Product used for unknown indication
     Dosage: TWO CAPSULES BEFORE MEALS (BREAKFAST, LUNCH AND DINNER), 6 CAPSULES PER DAY.
     Route: 048
     Dates: start: 2018

REACTIONS (4)
  - Pancreatic carcinoma [Unknown]
  - Drug dependence [Unknown]
  - Steatorrhoea [Unknown]
  - Abdominal pain [Unknown]

NARRATIVE: CASE EVENT DATE: 20180101
